FAERS Safety Report 8096929-6 (Version None)
Quarter: 2012Q1

REPORT INFORMATION
  Report Type: 
  Country: None (occurrence: None)
  Receive Date: 20120129
  Receipt Date: 20111116
  Transmission Date: 20120608
  Serious: No
  Sender: FDA-Public Use
  Company Number: US-ABBOTT-11P-163-0874559-00

PATIENT
  Age: 56 Year
  Sex: Male

DRUGS (3)
  1. TRAZODONE HCL [Concomitant]
     Indication: INSOMNIA
  2. HUMIRA [Suspect]
     Indication: PSORIASIS
  3. PROZAC [Concomitant]
     Indication: DEPRESSION

REACTIONS (3)
  - VITAMIN D DECREASED [None]
  - PAIN IN EXTREMITY [None]
  - MUSCLE SPASMS [None]
